FAERS Safety Report 4553417-9 (Version None)
Quarter: 2005Q1

REPORT INFORMATION
  Report Type: 
  Country: None (occurrence: None)
  Receive Date: 20050112
  Receipt Date: 20041222
  Transmission Date: 20050727
  Serious: Yes (Hospitalization)
  Sender: FDA-Public Use
  Company Number: FR_041205480

PATIENT
  Age: 73 Year
  Sex: Female

DRUGS (3)
  1. GEMZAR [Suspect]
     Indication: BILE DUCT CANCER
     Dates: start: 20041206
  2. OXALIPLATIN [Concomitant]
  3. STEROID [Concomitant]

REACTIONS (2)
  - ASTHMA [None]
  - LARYNGOSPASM [None]
